FAERS Safety Report 20232229 (Version 1)
Quarter: 2021Q4

REPORT INFORMATION
  Report Type: Spontaneous
  Country: US (occurrence: None)
  Receive Date: 20211224
  Receipt Date: 20211224
  Transmission Date: 20220303
  Serious: No
  Sender: FDA-Public Use
  Company Number: None

PATIENT
  Age: 63 Year
  Sex: Female
  Weight: 84 kg

DRUGS (1)
  1. PRIVIGEN [Suspect]
     Active Substance: HUMAN IMMUNOGLOBULIN G
     Dosage: OTHER FREQUENCY : ONCE;?
     Route: 042
     Dates: start: 20211223, end: 20211223

REACTIONS (5)
  - Infusion related reaction [None]
  - Pruritus [None]
  - Erythema [None]
  - Urticaria [None]
  - Palpitations [None]

NARRATIVE: CASE EVENT DATE: 20211223
